FAERS Safety Report 8107541-4 (Version None)
Quarter: 2011Q4

REPORT INFORMATION
  Report Type: 
  Country: None (occurrence: None)
  Receive Date: 20111223
  Receipt Date: 20110413
  Transmission Date: 20120403
  Serious: Yes (Hospitalization)
  Sender: FDA-Public Use
  Company Number: 326607

PATIENT
  Age: 80 Year
  Sex: Female
  Weight: 83.9 kg

DRUGS (2)
  1. LEVEMIR [Suspect]
     Indication: TYPE 2 DIABETES MELLITUS
     Dosage: 34 IU, QD, NIGHT, SUBCUTANEOUS
     Route: 058
     Dates: start: 20060301
  2. HUMALOG [Concomitant]

REACTIONS (3)
  - ACCIDENTAL OVERDOSE [None]
  - DEVICE MALFUNCTION [None]
  - INJECTION SITE PAIN [None]
